FAERS Safety Report 22164211 (Version 1)
Quarter: 2023Q2

REPORT INFORMATION
  Report Type: Spontaneous
  Country: US (occurrence: US)
  Receive Date: 20230402
  Receipt Date: 20230402
  Transmission Date: 20230721
  Serious: Yes (Other)
  Sender: FDA-Public Use
  Company Number: US-SANOFI-01552104

PATIENT
  Age: 26 Year
  Sex: Female

DRUGS (1)
  1. LOVENOX [Suspect]
     Active Substance: ENOXAPARIN SODIUM
     Indication: Pulmonary embolism

REACTIONS (6)
  - Cardiac flutter [Unknown]
  - Palpitations [Unknown]
  - Dyspnoea [Unknown]
  - Heart rate irregular [Unknown]
  - Dizziness [Unknown]
  - Exposure during pregnancy [Unknown]
